FAERS Safety Report 17366567 (Version 4)
Quarter: 2020Q1

REPORT INFORMATION
  Report Type: Spontaneous
  Country: US (occurrence: US)
  Receive Date: 20200204
  Receipt Date: 20200304
  Transmission Date: 20200409
  Serious: No
  Sender: FDA-Public Use
  Company Number: US-PFIZER INC-2020044350

PATIENT
  Age: 75 Year
  Sex: Male
  Weight: 68.4 kg

DRUGS (3)
  1. ELIQUIS [Suspect]
     Active Substance: APIXABAN
     Indication: ANTICOAGULANT THERAPY
     Dosage: 5 MG, 2X/DAY
     Route: 048
     Dates: start: 20200115
  2. ELIQUIS [Suspect]
     Active Substance: APIXABAN
     Indication: PULMONARY EMBOLISM
  3. CHANTIX [Suspect]
     Active Substance: VARENICLINE TARTRATE
     Indication: SMOKING CESSATION THERAPY
     Dosage: 5 MG, 2X/DAY (5 MG, ONCE IN THE MORNING AND ONCE IN THE EVENING)
     Route: 048
     Dates: start: 20200116, end: 20200125

REACTIONS (5)
  - Vomiting [Recovered/Resolved]
  - Decreased appetite [Recovered/Resolved]
  - Viral infection [Unknown]
  - Overdose [Unknown]
  - Malaise [Unknown]

NARRATIVE: CASE EVENT DATE: 202001
